FAERS Safety Report 7001567-X (Version None)
Quarter: 2010Q3

REPORT INFORMATION
  Report Type: 
  Country: None (occurrence: None)
  Receive Date: 20100916
  Receipt Date: 20100902
  Transmission Date: 20110219
  Serious: Yes (Other)
  Sender: FDA-Public Use
  Company Number: ACO_02091_2010

PATIENT
  Sex: Female
  Weight: 56.246 kg

DRUGS (9)
  1. AMPYRA [Suspect]
     Indication: GAIT DISTURBANCE
     Dosage: (10 MG   BID ORAL), (10 MG QD ORAL), (10 MG BID ORAL), (10 MG QD ORAL)
     Route: 048
     Dates: start: 20100701, end: 20100701
  2. AMPYRA [Suspect]
     Indication: GAIT DISTURBANCE
     Dosage: (10 MG   BID ORAL), (10 MG QD ORAL), (10 MG BID ORAL), (10 MG QD ORAL)
     Route: 048
     Dates: start: 20100701, end: 20100825
  3. AMPYRA [Suspect]
     Indication: GAIT DISTURBANCE
     Dosage: (10 MG   BID ORAL), (10 MG QD ORAL), (10 MG BID ORAL), (10 MG QD ORAL)
     Route: 048
     Dates: start: 20100826, end: 20100831
  4. AMPYRA [Suspect]
     Indication: GAIT DISTURBANCE
     Dosage: (10 MG   BID ORAL), (10 MG QD ORAL), (10 MG BID ORAL), (10 MG QD ORAL)
     Route: 048
     Dates: start: 20100901
  5. REBIF [Concomitant]
  6. BACLOFEN [Concomitant]
  7. ROPINIROLE [Concomitant]
  8. VERAPAMIL [Concomitant]
  9. ALENDRONATE SODIUM [Concomitant]

REACTIONS (3)
  - DYSPEPSIA [None]
  - INSOMNIA [None]
  - LOSS OF CONSCIOUSNESS [None]
